FAERS Safety Report 6158725-6 (Version None)
Quarter: 2009Q2

REPORT INFORMATION
  Report Type: 
  Country: None (occurrence: None)
  Receive Date: 20090417
  Receipt Date: 20090410
  Transmission Date: 20091009
  Serious: Yes (Hospitalization)
  Sender: FDA-Public Use
  Company Number: A0779038A

PATIENT
  Age: 35 Year
  Sex: Female
  Weight: 113.6 kg

DRUGS (9)
  1. AVANDIA [Suspect]
     Indication: DIABETES MELLITUS
     Dosage: 4MG PER DAY
     Route: 048
     Dates: start: 20031215, end: 20070101
  2. SIMVASTATIN [Concomitant]
  3. TRAMADOL [Concomitant]
  4. LEVOTHYROXINE SODIUM [Concomitant]
  5. LISINOPRIL [Concomitant]
  6. IBUPROFEN [Concomitant]
  7. FLUCONAZOLE [Concomitant]
  8. BENAZEPRIL [Concomitant]
  9. PROMETHAZINE [Concomitant]

REACTIONS (1)
  - MYOCARDIAL INFARCTION [None]
